FAERS Safety Report 14837353 (Version 5)
Quarter: 2021Q2

REPORT INFORMATION
  Report Type: Report from Study
  Country: US (occurrence: US)
  Receive Date: 20180502
  Receipt Date: 20210611
  Transmission Date: 20210716
  Serious: Yes (Hospitalization)
  Sender: FDA-Public Use
  Company Number: US-SA-2018SA116725

PATIENT
  Age: 71 Year
  Sex: Male

DRUGS (3)
  1. DUPILUMAB [Suspect]
     Active Substance: DUPILUMAB
     Dosage: 300 MG, QOW
     Route: 058
     Dates: start: 20180411, end: 20180411
  2. DUPILUMAB [Suspect]
     Active Substance: DUPILUMAB
     Indication: DERMATITIS
     Dosage: 600 MG, 1X
     Route: 058
  3. DUPILUMAB [Suspect]
     Active Substance: DUPILUMAB
     Indication: DERMATITIS ALLERGIC
     Dosage: 300 MG, 1X
     Route: 058
     Dates: start: 20180411, end: 20180411

REACTIONS (17)
  - Skin infection [Not Recovered/Not Resolved]
  - Herpes zoster [Recovering/Resolving]
  - Eye pruritus [Unknown]
  - Eye infection [Not Recovered/Not Resolved]
  - Eye irritation [Not Recovered/Not Resolved]
  - Product use in unapproved indication [Unknown]
  - Eye swelling [Not Recovered/Not Resolved]
  - Eye pain [Not Recovered/Not Resolved]
  - Soft tissue disorder [Recovering/Resolving]
  - Eyelid pain [Not Recovered/Not Resolved]
  - Product use issue [Unknown]
  - Hypersensitivity [Not Recovered/Not Resolved]
  - Vision blurred [Unknown]
  - Hyperaesthesia [Not Recovered/Not Resolved]
  - Erythema [Not Recovered/Not Resolved]
  - Headache [Not Recovered/Not Resolved]
  - Sensation of foreign body [Recovering/Resolving]

NARRATIVE: CASE EVENT DATE: 20180413
